FAERS Safety Report 11209268 (Version 2)
Quarter: 2015Q3

REPORT INFORMATION
  Report Type: Report from Study
  Country: US (occurrence: US)
  Receive Date: 20150622
  Receipt Date: 20150722
  Transmission Date: 20151125
  Serious: Yes (Other)
  Sender: FDA-Public Use
  Company Number: US-EMD SERONO-8030657

PATIENT
  Sex: Female

DRUGS (2)
  1. GONAL-F RFF [Suspect]
     Active Substance: FOLLITROPIN
     Dosage: 0.5 [UNIT UNSPECIFIED]
     Dates: start: 20140430
  2. GONAL-F RFF [Suspect]
     Active Substance: FOLLITROPIN
     Indication: PRODUCT USED FOR UNKNOWN INDICATION
     Dosage: 3.2 [UNIT UNSPECIFIED]
     Dates: start: 20140414

REACTIONS (1)
  - Abortion spontaneous [Recovered/Resolved]
